FAERS Safety Report 7634333-2 (Version None)
Quarter: 2011Q3

REPORT INFORMATION
  Report Type: 
  Country: None (occurrence: None)
  Receive Date: 20110725
  Receipt Date: 20110218
  Transmission Date: 20111222
  Serious: No
  Sender: FDA-Public Use
  Company Number: US-MYLANLABS-2011S1003586

PATIENT
  Age: 56 Year
  Sex: Female
  Weight: 58.97 kg

DRUGS (1)
  1. BUSPIRONE HCL [Suspect]
     Indication: ANXIETY
     Route: 048
     Dates: start: 20101201

REACTIONS (2)
  - PRURITUS [None]
  - URTICARIA [None]
